FAERS Safety Report 6135130-X (Version None)
Quarter: 2009Q1

REPORT INFORMATION
  Report Type: 
  Country: None (occurrence: None)
  Receive Date: 20090327
  Receipt Date: 20090324
  Transmission Date: 20090719
  Serious: Yes (Disabling)
  Sender: FDA-Public Use
  Company Number: US-MERCK-0902USA00622

PATIENT
  Age: 52 Year
  Sex: Male
  Weight: 96 kg

DRUGS (4)
  1. ZOCOR [Suspect]
     Indication: BLOOD CHOLESTEROL INCREASED
     Route: 048
     Dates: start: 20080101
  2. ZOCOR [Suspect]
     Route: 048
     Dates: start: 20090108, end: 20090131
  3. ZOCOR [Suspect]
     Indication: HYPERLIPIDAEMIA
     Route: 048
     Dates: start: 20080101
  4. ZOCOR [Suspect]
     Route: 048
     Dates: start: 20090108, end: 20090131

REACTIONS (8)
  - ARTHRALGIA [None]
  - ASTHENIA [None]
  - INJURY [None]
  - JOINT SWELLING [None]
  - MOVEMENT DISORDER [None]
  - MUSCULOSKELETAL PAIN [None]
  - MYALGIA [None]
  - PAIN [None]
